FAERS Safety Report 5370773-2 (Version None)
Quarter: 2007Q2

REPORT INFORMATION
  Report Type: 
  Country: None (occurrence: None)
  Receive Date: 20070626
  Receipt Date: 20070625
  Transmission Date: 20071010
  Serious: Yes (Hospitalization)
  Sender: FDA-Public Use
  Company Number: A0660030A

PATIENT
  Age: 40 Year
  Sex: Female
  Weight: 62 kg

DRUGS (5)
  1. SERETIDE [Suspect]
     Indication: ASTHMA
     Route: 055
     Dates: start: 20050601
  2. METICORTEN [Suspect]
     Indication: DRUG USE FOR UNKNOWN INDICATION
     Dosage: 1TAB PER DAY
     Route: 048
     Dates: start: 20070611, end: 20070616
  3. BEROTEC [Concomitant]
  4. ATROVENT [Concomitant]
  5. SODIUM CHLORIDE [Concomitant]

REACTIONS (3)
  - CHEST PAIN [None]
  - DRUG INEFFECTIVE [None]
  - RALES [None]
